FAERS Safety Report 7981532-6 (Version None)
Quarter: 2011Q4

REPORT INFORMATION
  Report Type: 
  Country: None (occurrence: None)
  Receive Date: 20111215
  Receipt Date: 20111212
  Transmission Date: 20120403
  Serious: Yes (Hospitalization, Disabling, Other)
  Sender: FDA-Public Use
  Company Number: US-PFIZER INC-2010035776

PATIENT
  Sex: Male

DRUGS (6)
  1. DOXYCYCLINE HYCLATE [Concomitant]
     Indication: ACNE
     Dosage: UNK
     Dates: start: 20050101
  2. SEROQUEL [Concomitant]
     Indication: ANXIETY
  3. CHANTIX [Suspect]
     Dosage: 1 MG, UNK
     Route: 048
     Dates: start: 20081101, end: 20081201
  4. SEROQUEL [Concomitant]
     Indication: DEPRESSION
  5. CHANTIX [Suspect]
     Indication: SMOKING CESSATION THERAPY
     Dosage: STARTING MONTH PACK
     Route: 048
     Dates: start: 20080225, end: 20080101
  6. SEROQUEL [Concomitant]
     Indication: POST-TRAUMATIC STRESS DISORDER
     Dosage: UNK
     Dates: start: 20070101, end: 20090101

REACTIONS (13)
  - POST-TRAUMATIC STRESS DISORDER [None]
  - HALLUCINATION [None]
  - MENTAL DISORDER [None]
  - ANXIETY [None]
  - MAJOR DEPRESSION [None]
  - SUICIDAL IDEATION [None]
  - PARANOIA [None]
  - NIGHTMARE [None]
  - NERVOUS SYSTEM DISORDER [None]
  - FEAR [None]
  - ALCOHOL ABUSE [None]
  - AGGRESSION [None]
  - INSOMNIA [None]
